FAERS Safety Report 8304981-5 (Version None)
Quarter: 2012Q2

REPORT INFORMATION
  Report Type: 
  Country: None (occurrence: None)
  Receive Date: 20120423
  Receipt Date: 20120413
  Transmission Date: 20120825
  Serious: Yes (Hospitalization, Other)
  Sender: FDA-Public Use
  Company Number: NL-MEDIMMUNE-MEDI-0013856

PATIENT
  Sex: Male
  Weight: 6.93 kg

DRUGS (8)
  1. HYDROCHLOROTHIAZIDE [Concomitant]
  2. DOMPERIDONE MALEATE [Concomitant]
  3. SYNAGIS [Suspect]
     Indication: BRONCHOPULMONARY DYSPLASIA
     Route: 030
     Dates: start: 20110908, end: 20111007
  4. SYNAGIS [Suspect]
     Route: 030
     Dates: start: 20120413, end: 20120413
  5. COTIMOXAZOL [Concomitant]
  6. SODIUM CHLORIDE [Concomitant]
  7. RANITIDINE HCL [Concomitant]
  8. FUROSEMIDE [Concomitant]

REACTIONS (2)
  - WEIGHT GAIN POOR [None]
  - HYPOPHAGIA [None]
